FAERS Safety Report 8221812 (Version 43)
Quarter: 2019Q4

REPORT INFORMATION
  Report Type: Spontaneous
  Country: CA (occurrence: CA)
  Receive Date: 20111102
  Receipt Date: 20191009
  Transmission Date: 20200122
  Serious: Yes (Life-Threatening, Other)
  Sender: FDA-Public Use
  Company Number: CA-AMGEN-CANSP2011055730

PATIENT
  Age: 45 Year
  Sex: Female

DRUGS (160)
  1. ENBREL [Suspect]
     Active Substance: ETANERCEPT
     Indication: PRODUCT USED FOR UNKNOWN INDICATION
     Dosage: 25 MILLIGRAM, UNK
     Route: 065
  2. ENBREL [Suspect]
     Active Substance: ETANERCEPT
     Dosage: 20 MILLIGRAM, UNK
     Route: 058
  3. ENBREL [Suspect]
     Active Substance: ETANERCEPT
     Dosage: 25 MILLIGRAM, QD
     Route: 058
  4. MYCOPHENOLATE MOFETIL. [Suspect]
     Active Substance: MYCOPHENOLATE MOFETIL
     Dosage: 1000 MILLIGRAM, UNK
     Route: 048
  5. PROGRAF [Suspect]
     Active Substance: TACROLIMUS
     Indication: TRANSPLANT
     Dosage: 1000 MILLIGRAM, BID
     Route: 048
  6. PROGRAF [Suspect]
     Active Substance: TACROLIMUS
     Dosage: 2 MILLIGRAM, BID
     Route: 048
  7. PROGRAF [Suspect]
     Active Substance: TACROLIMUS
     Dosage: 3 MILLIGRAM, BID
     Route: 048
  8. PROGRAF [Suspect]
     Active Substance: TACROLIMUS
     Dosage: 3 MILLIGRAM, Q12H
     Route: 048
  9. PROGRAF [Suspect]
     Active Substance: TACROLIMUS
     Dosage: 2000 MILLIGRAM, QD
     Route: 048
  10. RAPAMUNE [Suspect]
     Active Substance: SIROLIMUS
     Indication: TRANSPLANT
     Dosage: UNK
     Route: 065
  11. ZENAPAX [Suspect]
     Active Substance: DACLIZUMAB
     Dosage: UNK
     Route: 042
  12. DACLIZUMAB [Suspect]
     Active Substance: DACLIZUMAB
     Indication: TRANSPLANT
     Dosage: 5 MILLIGRAM, UNK
     Route: 042
  13. DACLIZUMAB [Suspect]
     Active Substance: DACLIZUMAB
     Dosage: UNK
     Route: 065
  14. SULFASALAZINE. [Suspect]
     Active Substance: SULFASALAZINE
     Dosage: 1 GRAM, UNK
     Route: 042
  15. TACROLIMUS. [Suspect]
     Active Substance: TACROLIMUS
     Dosage: 5 MILLIGRAM, QD
     Route: 048
  16. TACROLIMUS. [Suspect]
     Active Substance: TACROLIMUS
     Dosage: 2.5 MILLIGRAM, Q12H
     Route: 048
  17. TACROLIMUS. [Suspect]
     Active Substance: TACROLIMUS
     Dosage: 5 MILLIGRAM, QD
     Route: 048
  18. ANTITHYMOCYTE IMMUNOGLOBULIN (RABBIT) [Suspect]
     Active Substance: LAPINE T-LYMPHOCYTE IMMUNE GLOBULIN
     Dosage: 3 MILLIGRAM, BID
     Route: 065
  19. ENBREL [Suspect]
     Active Substance: ETANERCEPT
     Dosage: 50 MILLIGRAM, QD
     Route: 058
  20. ENBREL [Suspect]
     Active Substance: ETANERCEPT
     Dosage: 50 MILLIGRAM, QWK
     Route: 058
  21. ENBREL [Suspect]
     Active Substance: ETANERCEPT
     Dosage: 50 MILLIGRAM, UNK
     Route: 065
  22. ENBREL [Suspect]
     Active Substance: ETANERCEPT
     Dosage: 50 MILLIGRAM, QD
     Route: 048
  23. MYCOPHENOLATE MOFETIL. [Suspect]
     Active Substance: MYCOPHENOLATE MOFETIL
     Dosage: 1000 MILLIGRAM, Q12H
     Route: 065
  24. MYCOPHENOLATE MOFETIL. [Suspect]
     Active Substance: MYCOPHENOLATE MOFETIL
     Dosage: 1000 MILLIGRAM, QD
     Route: 048
  25. PROGRAF [Suspect]
     Active Substance: TACROLIMUS
     Dosage: 11 MILLIGRAM, UNK
     Route: 048
  26. PROGRAF [Suspect]
     Active Substance: TACROLIMUS
     Dosage: 6 MILLIGRAM, QD
     Route: 048
  27. PROGRAF [Suspect]
     Active Substance: TACROLIMUS
     Dosage: 2.5 MILLIGRAM, QD
     Route: 048
  28. PROGRAF [Suspect]
     Active Substance: TACROLIMUS
     Dosage: 22 MILLIGRAM, BID
     Route: 048
  29. PROGRAF [Suspect]
     Active Substance: TACROLIMUS
     Dosage: 3 MILLIGRAM, UNK
     Route: 048
  30. PROGRAF [Suspect]
     Active Substance: TACROLIMUS
     Dosage: 2 MILLIGRAM, Q12H
     Route: 048
  31. PROGRAF [Suspect]
     Active Substance: TACROLIMUS
     Dosage: 2 MILLIGRAM, QD
     Route: 048
  32. CELLCEPT [Suspect]
     Active Substance: MYCOPHENOLATE MOFETIL\MYCOPHENOLATE MOFETIL HYDROCHLORIDE
     Dosage: 1000 MG, BID
     Route: 048
  33. NEORAL [Suspect]
     Active Substance: CYCLOSPORINE
     Indication: TRANSPLANT
     Dosage: UNK
     Route: 065
  34. REMICADE [Suspect]
     Active Substance: INFLIXIMAB
     Dosage: UNK
     Route: 042
  35. ANTITHYMOCYTE IMMUNOGLOBULIN [Suspect]
     Active Substance: THYMOCYTE IMMUNE GLOBULIN NOS
     Dosage: 50 MILLIGRAM, UNK
     Route: 065
  36. ENBREL [Suspect]
     Active Substance: ETANERCEPT
     Dosage: 25 MILLIGRAM, QWK
     Route: 058
  37. ENBREL [Suspect]
     Active Substance: ETANERCEPT
     Dosage: 25 MILLIGRAM
     Route: 058
  38. ENBREL [Suspect]
     Active Substance: ETANERCEPT
     Dosage: 25 MILLIGRAM, QWK
     Route: 048
  39. MYCOPHENOLATE MOFETIL. [Suspect]
     Active Substance: MYCOPHENOLATE MOFETIL
     Indication: TRANSPLANT
     Dosage: 2000 MILLIGRAM, QD
     Route: 048
  40. MYCOPHENOLATE MOFETIL. [Suspect]
     Active Substance: MYCOPHENOLATE MOFETIL
     Dosage: 100 MILLIGRAM, BID
     Route: 065
  41. MYCOPHENOLATE MOFETIL. [Suspect]
     Active Substance: MYCOPHENOLATE MOFETIL
     Dosage: 100 MILLIGRAM, BID
     Route: 048
  42. MYCOPHENOLATE MOFETIL. [Suspect]
     Active Substance: MYCOPHENOLATE MOFETIL
     Dosage: 2000 MILLIGRAM, QD
     Route: 048
  43. PROGRAF [Suspect]
     Active Substance: TACROLIMUS
     Dosage: 1000 MILLIGRAM, 2 EVERY 1 HOUR
     Route: 048
  44. PROGRAF [Suspect]
     Active Substance: TACROLIMUS
     Dosage: 3 MILLIGRAM, 2 EVERY 1 HOUR
     Route: 048
  45. PROGRAF [Suspect]
     Active Substance: TACROLIMUS
     Dosage: 4 MILLIGRAM, QD
     Route: 048
  46. PROGRAF [Suspect]
     Active Substance: TACROLIMUS
     Dosage: 2.5 MILLIGRAM, Q12H
     Route: 048
  47. PROGRAF [Suspect]
     Active Substance: TACROLIMUS
     Dosage: 2.5 MILLIGRAM, QD
     Route: 048
  48. PROGRAF [Suspect]
     Active Substance: TACROLIMUS
     Dosage: 2 MILLIGRAM, Q12H
     Route: 048
  49. CELLCEPT [Suspect]
     Active Substance: MYCOPHENOLATE MOFETIL\MYCOPHENOLATE MOFETIL HYDROCHLORIDE
     Dosage: 1000 MG, BID
     Route: 048
  50. CELLCEPT [Suspect]
     Active Substance: MYCOPHENOLATE MOFETIL\MYCOPHENOLATE MOFETIL HYDROCHLORIDE
     Dosage: 100 MG, BID
     Route: 065
  51. CELLCEPT [Suspect]
     Active Substance: MYCOPHENOLATE MOFETIL\MYCOPHENOLATE MOFETIL HYDROCHLORIDE
     Dosage: 1000 MG, BID
     Route: 065
  52. TACROLIMUS. [Suspect]
     Active Substance: TACROLIMUS
     Indication: TRANSPLANT
     Dosage: 3 MILLIGRAM, BID
     Route: 048
  53. TACROLIMUS. [Suspect]
     Active Substance: TACROLIMUS
     Dosage: 2.5 MILLIGRAM, BID
     Route: 048
  54. TACROLIMUS. [Suspect]
     Active Substance: TACROLIMUS
     Dosage: 6 MILLIGRAM, QD
     Route: 048
  55. TACROLIMUS. [Suspect]
     Active Substance: TACROLIMUS
     Dosage: 11.1 GRAM, UNK
     Route: 065
  56. ANTITHYMOCYTE IMMUNOGLOBULIN (RABBIT) [Suspect]
     Active Substance: LAPINE T-LYMPHOCYTE IMMUNE GLOBULIN
     Dosage: 50 MILLIGRAM, UNK
     Route: 065
  57. ZINBRYTA [Suspect]
     Active Substance: DACLIZUMAB
     Indication: PRODUCT USED FOR UNKNOWN INDICATION
     Dosage: UNK
     Route: 042
  58. TEMAZEPAM. [Suspect]
     Active Substance: TEMAZEPAM
     Indication: PRODUCT USED FOR UNKNOWN INDICATION
     Dosage: UNK
     Route: 065
  59. ENBREL [Suspect]
     Active Substance: ETANERCEPT
     Dosage: 50 MILLIGRAM, QWK
     Route: 058
  60. ENBREL [Suspect]
     Active Substance: ETANERCEPT
     Dosage: 25 MILLIGRAM, QWK
     Route: 058
  61. ENBREL [Suspect]
     Active Substance: ETANERCEPT
     Dosage: 50 MILLIGRAM, UNK
     Route: 058
  62. MYCOPHENOLATE MOFETIL. [Suspect]
     Active Substance: MYCOPHENOLATE MOFETIL
     Dosage: 1000 MILLIGRAM, Q12H
     Route: 065
  63. MYCOPHENOLATE MOFETIL. [Suspect]
     Active Substance: MYCOPHENOLATE MOFETIL
     Dosage: 2000 MILLIGRAM, QD
     Route: 048
  64. PROGRAF [Suspect]
     Active Substance: TACROLIMUS
     Dosage: 2 MILLIGRAM, BID
     Route: 048
  65. PROGRAF [Suspect]
     Active Substance: TACROLIMUS
     Dosage: UNK
     Route: 048
  66. PROGRAF [Suspect]
     Active Substance: TACROLIMUS
     Dosage: 4 MILLIGRAM, QD
     Route: 048
  67. PROGRAF [Suspect]
     Active Substance: TACROLIMUS
     Dosage: 2 MILLIGRAM, UNK
     Route: 065
  68. PROGRAF [Suspect]
     Active Substance: TACROLIMUS
     Dosage: 2 MILLIGRAM, BID
     Route: 048
  69. PROGRAF [Suspect]
     Active Substance: TACROLIMUS
     Dosage: 2 MILLIGRAM, BID
     Route: 048
  70. PROGRAF [Suspect]
     Active Substance: TACROLIMUS
     Dosage: 6 MILLIGRAM, QD
     Route: 048
  71. ZENAPAX [Suspect]
     Active Substance: DACLIZUMAB
     Indication: PRODUCT USED FOR UNKNOWN INDICATION
     Dosage: 5 MILLIGRAM, UNK
     Route: 042
  72. DACLIZUMAB [Suspect]
     Active Substance: DACLIZUMAB
     Dosage: UNK
     Route: 042
  73. DACLIZUMAB [Suspect]
     Active Substance: DACLIZUMAB
     Dosage: UNK
     Route: 042
  74. DACLIZUMAB [Suspect]
     Active Substance: DACLIZUMAB
     Dosage: UNK
     Route: 042
  75. CELLCEPT [Suspect]
     Active Substance: MYCOPHENOLATE MOFETIL\MYCOPHENOLATE MOFETIL HYDROCHLORIDE
     Dosage: UNK
     Route: 065
  76. REMICADE [Suspect]
     Active Substance: INFLIXIMAB
     Indication: PRODUCT USED FOR UNKNOWN INDICATION
     Dosage: UNK
     Route: 042
  77. REMICADE [Suspect]
     Active Substance: INFLIXIMAB
     Dosage: UNK
     Route: 065
  78. TACROLIMUS. [Suspect]
     Active Substance: TACROLIMUS
     Dosage: 3 MILLIGRAM, Q12H
     Route: 048
  79. TACROLIMUS. [Suspect]
     Active Substance: TACROLIMUS
     Dosage: 2.5 MILLIGRAM, QD
     Route: 048
  80. TACROLIMUS. [Suspect]
     Active Substance: TACROLIMUS
     Dosage: 11.1 GRAM
     Route: 048
  81. ANTITHYMOCYTE IMMUNOGLOBULIN [Suspect]
     Active Substance: THYMOCYTE IMMUNE GLOBULIN NOS
     Dosage: 6 MILLIGRAM, UNK
     Route: 065
  82. ANTITHYMOCYTE IMMUNOGLOBULIN [Suspect]
     Active Substance: THYMOCYTE IMMUNE GLOBULIN NOS
     Dosage: UNK (60 MG/KG)
     Route: 065
  83. ANTIHUMANLYMFOCYT-GLOBULIN [Suspect]
     Active Substance: THYMOCYTE IMMUNE GLOBULIN NOS
     Indication: TRANSPLANT
     Dosage: 60 MILLIGRAM, UNK
     Route: 065
  84. ANTITHYMOCYTE IMMUNOGLOBULIN (RABBIT) [Suspect]
     Active Substance: LAPINE T-LYMPHOCYTE IMMUNE GLOBULIN
     Dosage: 6 MILLIGRAM/KILOGRAM, UNK
     Route: 065
  85. ENBREL [Suspect]
     Active Substance: ETANERCEPT
     Dosage: 25 MILLIGRAM, QID
     Route: 065
  86. ENBREL [Suspect]
     Active Substance: ETANERCEPT
     Dosage: 25 MILLIGRAM, QWK
     Route: 065
  87. ENBREL [Suspect]
     Active Substance: ETANERCEPT
     Dosage: 25 MILLIGRAM, QD
     Route: 048
  88. MYCOPHENOLATE MOFETIL. [Suspect]
     Active Substance: MYCOPHENOLATE MOFETIL
     Dosage: 1000 MILLIGRAM, BID
     Route: 048
  89. PROGRAF [Suspect]
     Active Substance: TACROLIMUS
     Dosage: 3 MILLIGRAM, BID
     Route: 048
  90. PROGRAF [Suspect]
     Active Substance: TACROLIMUS
     Dosage: 5 MILLIGRAM, QD
     Route: 048
  91. PROGRAF [Suspect]
     Active Substance: TACROLIMUS
     Dosage: 11.3 MILLIGRAM, BID
     Route: 048
  92. PROGRAF [Suspect]
     Active Substance: TACROLIMUS
     Dosage: 2.5 MILLIGRAM, BID
     Route: 048
  93. RAPAMUNE [Suspect]
     Active Substance: SIROLIMUS
     Dosage: 1000 MILLIGRAM, BID
     Route: 065
  94. DACLIZUMAB [Suspect]
     Active Substance: DACLIZUMAB
     Dosage: 5 MILLIGRAM, UNK
     Route: 042
  95. CELLCEPT [Suspect]
     Active Substance: MYCOPHENOLATE MOFETIL\MYCOPHENOLATE MOFETIL HYDROCHLORIDE
     Indication: TRANSPLANT
     Dosage: 1000 MG, BID
     Route: 048
  96. CELLCEPT [Suspect]
     Active Substance: MYCOPHENOLATE MOFETIL\MYCOPHENOLATE MOFETIL HYDROCHLORIDE
     Dosage: 1000 MG, UNK
     Route: 048
  97. CELLCEPT [Suspect]
     Active Substance: MYCOPHENOLATE MOFETIL\MYCOPHENOLATE MOFETIL HYDROCHLORIDE
     Dosage: 2000 MG, QD
     Route: 048
  98. SULFASALAZINE. [Suspect]
     Active Substance: SULFASALAZINE
     Dosage: UNK
     Route: 065
  99. TACROLIMUS. [Suspect]
     Active Substance: TACROLIMUS
     Dosage: 2 MILLIGRAM, BID
     Route: 048
  100. TACROLIMUS. [Suspect]
     Active Substance: TACROLIMUS
     Dosage: 6 MILLIGRAM, QD
     Route: 048
  101. ANTILYMPHOCYTE GLOBULIN [Suspect]
     Active Substance: THYMOCYTE IMMUNE GLOBULIN NOS
     Indication: TRANSPLANT
     Dosage: UNK (6 MG/KG )
     Route: 065
  102. ANTITHYMOCYTE IMMUNOGLOBULIN [Suspect]
     Active Substance: THYMOCYTE IMMUNE GLOBULIN NOS
     Dosage: UNK
     Route: 065
  103. ANTITHYMOCYTE IMMUNOGLOBULIN [Suspect]
     Active Substance: THYMOCYTE IMMUNE GLOBULIN NOS
     Dosage: 60 MILLIGRAM, UNK
     Route: 065
  104. ANTITHYMOCYTE IMMUNOGLOBULIN (HORSE) [Suspect]
     Active Substance: EQUINE THYMOCYTE IMMUNE GLOBULIN
     Indication: TRANSPLANT
     Dosage: UNK (6 MG/KG)
     Route: 065
  105. GLICLAZIDE [Suspect]
     Active Substance: GLICLAZIDE
     Indication: PRODUCT USED FOR UNKNOWN INDICATION
     Dosage: UNK
     Route: 042
  106. ENBREL [Suspect]
     Active Substance: ETANERCEPT
     Dosage: 50 MILLIGRAM, UNK
     Route: 058
  107. ENBREL [Suspect]
     Active Substance: ETANERCEPT
     Dosage: 25 MILLIGRAM, UNK
     Route: 058
  108. ENBREL [Suspect]
     Active Substance: ETANERCEPT
     Dosage: 25 MILLIGRAM, QD
     Route: 065
  109. MYCOPHENOLATE MOFETIL. [Suspect]
     Active Substance: MYCOPHENOLATE MOFETIL
     Dosage: UNK
     Route: 065
  110. PROGRAF [Suspect]
     Active Substance: TACROLIMUS
     Dosage: 6 MILLIGRAM, QD
     Route: 048
  111. PROGRAF [Suspect]
     Active Substance: TACROLIMUS
     Dosage: UNK
     Route: 048
  112. PROGRAF [Suspect]
     Active Substance: TACROLIMUS
     Dosage: 2 MILLIGRAM, UNK
     Route: 048
  113. PROGRAF [Suspect]
     Active Substance: TACROLIMUS
     Dosage: 3 MILLIGRAM, QD
     Route: 048
  114. PROGRAF [Suspect]
     Active Substance: TACROLIMUS
     Dosage: 3 MILLIGRAM, Q12H
     Route: 048
  115. PROGRAF [Suspect]
     Active Substance: TACROLIMUS
     Dosage: 6 MILLIGRAM, QD
     Route: 048
  116. CELLCEPT [Suspect]
     Active Substance: MYCOPHENOLATE MOFETIL\MYCOPHENOLATE MOFETIL HYDROCHLORIDE
     Dosage: 2000 MG, QD
     Route: 048
  117. NEORAL [Suspect]
     Active Substance: CYCLOSPORINE
     Dosage: UNK
     Route: 065
  118. TACROLIMUS. [Suspect]
     Active Substance: TACROLIMUS
     Dosage: 2 MILLIGRAM, Q12H
     Route: 048
  119. ANTITHYMOCYTE IMMUNOGLOBULIN [Suspect]
     Active Substance: THYMOCYTE IMMUNE GLOBULIN NOS
     Indication: TRANSPLANT
     Dosage: UNK (6MG/KG)
     Route: 065
  120. ANTIHUMANLYMFOCYT-GLOBULIN [Suspect]
     Active Substance: THYMOCYTE IMMUNE GLOBULIN NOS
     Dosage: 60 MILLIGRAM, UNK
     Route: 065
  121. ANTITHYMOCYTE IMMUNOGLOBULIN (RABBIT) [Suspect]
     Active Substance: LAPINE T-LYMPHOCYTE IMMUNE GLOBULIN
     Indication: TRANSPLANT
     Dosage: 60 MILLIGRAM, UNK
     Route: 065
  122. ANTITHYMOCYTE IMMUNOGLOBULIN (RABBIT) [Suspect]
     Active Substance: LAPINE T-LYMPHOCYTE IMMUNE GLOBULIN
     Dosage: 60 MILLIGRAM/KILOGRAM, UNK
     Route: 065
  123. ENBREL [Suspect]
     Active Substance: ETANERCEPT
     Dosage: 25 MILLIGRAM, UNK
     Route: 065
  124. ENBREL [Suspect]
     Active Substance: ETANERCEPT
     Dosage: 50 MILLIGRAM, QD
     Route: 058
  125. MYCOPHENOLATE MOFETIL. [Suspect]
     Active Substance: MYCOPHENOLATE MOFETIL
     Dosage: 1000 MILLIGRAM, UNK
     Route: 048
  126. MYCOPHENOLATE MOFETIL. [Suspect]
     Active Substance: MYCOPHENOLATE MOFETIL
     Dosage: 2000 MILLIGRAM
     Route: 048
  127. PROGRAF [Suspect]
     Active Substance: TACROLIMUS
     Dosage: 2.5 MILLIGRAM, BID
     Route: 048
  128. PROGRAF [Suspect]
     Active Substance: TACROLIMUS
     Dosage: 2.5 MILLIGRAM, BID
     Route: 048
  129. PROGRAF [Suspect]
     Active Substance: TACROLIMUS
     Dosage: 5 MILLIGRAM, QD
     Route: 048
  130. PROGRAF [Suspect]
     Active Substance: TACROLIMUS
     Dosage: 2.5 MILLIGRAM, QD
     Route: 048
  131. RAPAMUNE [Suspect]
     Active Substance: SIROLIMUS
     Dosage: 3 MILLIGRAM
     Route: 042
  132. NEORAL [Suspect]
     Active Substance: CYCLOSPORINE
     Dosage: 1000 MILLIGRAM, BID
     Route: 065
  133. SULFASALAZINE. [Suspect]
     Active Substance: SULFASALAZINE
     Indication: RHEUMATOID ARTHRITIS
     Dosage: 1 GRAM, UNK
     Route: 065
  134. ANTITHYMOCYTE IMMUNOGLOBULIN (RABBIT) [Suspect]
     Active Substance: LAPINE T-LYMPHOCYTE IMMUNE GLOBULIN
     Dosage: 6 MILLIGRAM/KILOGRAM, UNK
     Route: 065
  135. ENBREL [Suspect]
     Active Substance: ETANERCEPT
     Dosage: 50 MILLIGRAM, QID
     Route: 058
  136. ENBREL [Suspect]
     Active Substance: ETANERCEPT
     Dosage: 25 MILLIGRAM, UNK
     Route: 058
  137. ENBREL [Suspect]
     Active Substance: ETANERCEPT
     Dosage: 25 MILLIGRAM, QID
     Route: 065
  138. ENBREL [Suspect]
     Active Substance: ETANERCEPT
     Dosage: 50 MILLIGRAM, BID
     Route: 058
  139. ENBREL [Suspect]
     Active Substance: ETANERCEPT
     Dosage: 25 MILLIGRAM, QD
     Route: 058
  140. ENBREL [Suspect]
     Active Substance: ETANERCEPT
     Dosage: 50 MILLIGRAM, QD
     Route: 065
  141. ENBREL [Suspect]
     Active Substance: ETANERCEPT
     Dosage: 25 MILLIGRAM, QWK
     Route: 058
  142. MYCOPHENOLATE MOFETIL. [Suspect]
     Active Substance: MYCOPHENOLATE MOFETIL
     Dosage: UNK
     Route: 065
  143. MYCOPHENOLATE MOFETIL. [Suspect]
     Active Substance: MYCOPHENOLATE MOFETIL
     Dosage: 1000 MILLIGRAM, Q12H
     Route: 048
  144. MYCOPHENOLATE MOFETIL. [Suspect]
     Active Substance: MYCOPHENOLATE MOFETIL
     Dosage: 100 MILLIGRAM, BID
     Route: 048
  145. MYCOPHENOLATE MOFETIL. [Suspect]
     Active Substance: MYCOPHENOLATE MOFETIL
     Dosage: 100 MILLIGRAM, BID
     Route: 065
  146. PROGRAF [Suspect]
     Active Substance: TACROLIMUS
     Dosage: 2 MILLIGRAM, QD
     Route: 048
  147. PROGRAF [Suspect]
     Active Substance: TACROLIMUS
     Dosage: UNK
     Route: 048
  148. PROGRAF [Suspect]
     Active Substance: TACROLIMUS
     Dosage: 3 MILLIGRAM, UNK
     Route: 048
  149. PROGRAF [Suspect]
     Active Substance: TACROLIMUS
     Dosage: 6 MILLIGRAM, QD
     Route: 048
  150. PROGRAF [Suspect]
     Active Substance: TACROLIMUS
     Dosage: 5 MILLIGRAM, QD
     Route: 048
  151. PROGRAF [Suspect]
     Active Substance: TACROLIMUS
     Dosage: 5 MILLIGRAM, QD
     Route: 048
  152. PROGRAF [Suspect]
     Active Substance: TACROLIMUS
     Dosage: 4 MILLIGRAM, QD
     Route: 048
  153. PROGRAF [Suspect]
     Active Substance: TACROLIMUS
     Dosage: 3 MILLIGRAM, BID
     Route: 065
  154. ZENAPAX [Suspect]
     Active Substance: DACLIZUMAB
     Dosage: UNK
     Route: 042
  155. CELLCEPT [Suspect]
     Active Substance: MYCOPHENOLATE MOFETIL\MYCOPHENOLATE MOFETIL HYDROCHLORIDE
     Dosage: 2000 MG, QD
     Route: 048
  156. TACROLIMUS. [Suspect]
     Active Substance: TACROLIMUS
     Dosage: 3 MILLIGRAM, QD
     Route: 048
  157. TACROLIMUS. [Suspect]
     Active Substance: TACROLIMUS
     Dosage: 4 MILLIGRAM, QD
     Route: 048
  158. ANTITHYMOCYTE IMMUNOGLOBULIN (RABBIT) [Suspect]
     Active Substance: LAPINE T-LYMPHOCYTE IMMUNE GLOBULIN
     Dosage: 6 MILLIGRAM/KILOGRAM, UNK
     Route: 065
  159. ANTITHYMOCYTE IMMUNOGLOBULIN (RABBIT) [Suspect]
     Active Substance: LAPINE T-LYMPHOCYTE IMMUNE GLOBULIN
     Dosage: 60 MILLIGRAM/KILOGRAM, UNK
     Route: 065
  160. INFLIXIMAB [Suspect]
     Active Substance: INFLIXIMAB
     Indication: PRODUCT USED FOR UNKNOWN INDICATION
     Dosage: UNK
     Route: 042

REACTIONS (16)
  - Loss of personal independence in daily activities [Not Recovered/Not Resolved]
  - Transplant rejection [Not Recovered/Not Resolved]
  - Incorrect route of product administration [Not Recovered/Not Resolved]
  - Alopecia [Not Recovered/Not Resolved]
  - Transplant dysfunction [Not Recovered/Not Resolved]
  - Product use issue [Not Recovered/Not Resolved]
  - Condition aggravated [Not Recovered/Not Resolved]
  - Rheumatoid arthritis [Not Recovered/Not Resolved]
  - Sleep disorder due to general medical condition, insomnia type [Not Recovered/Not Resolved]
  - Pain [Not Recovered/Not Resolved]
  - Acne [Not Recovered/Not Resolved]
  - Overdose [Not Recovered/Not Resolved]
  - Ovarian cyst [Not Recovered/Not Resolved]
  - Liver function test abnormal [Not Recovered/Not Resolved]
  - Drug ineffective [Not Recovered/Not Resolved]
  - Pneumonia [Not Recovered/Not Resolved]
